FAERS Safety Report 4346253-X (Version None)
Quarter: 2004Q2

REPORT INFORMATION
  Report Type: 
  Country: None (occurrence: None)
  Receive Date: 20040423
  Receipt Date: 20040423
  Transmission Date: 20050107
  Serious: Yes (Other)
  Sender: FDA-Public Use
  Company Number: None

PATIENT
  Age: 80 Year
  Sex: Male
  Weight: 77.1115 kg

DRUGS (1)
  1. ALTACE [Suspect]
     Indication: BLOOD PRESSURE INCREASED
     Dosage: ONE CAPSULE ONLY - ORAL
     Route: 048
     Dates: start: 20040301

REACTIONS (2)
  - ARTHRALGIA [None]
  - DIFFICULTY IN WALKING [None]
